FAERS Safety Report 8903748 (Version 2)
Quarter: 2012Q4

REPORT INFORMATION
  Report Type: Report from Study
  Country: US (occurrence: US)
  Receive Date: 20121113
  Receipt Date: 20121120
  Transmission Date: 20130627
  Serious: Yes (Other)
  Sender: FDA-Public Use
  Company Number: US-JNJFOC-20121105190

PATIENT
  Sex: Female
  Weight: 64.41 kg

DRUGS (2)
  1. REMICADE [Suspect]
     Indication: CROHN^S DISEASE
     Route: 042
     Dates: start: 201110, end: 20120326
  2. IMURAN [Concomitant]
     Indication: CROHN^S DISEASE
     Dates: start: 201110, end: 20111201

REACTIONS (1)
  - Lupus-like syndrome [Not Recovered/Not Resolved]
